FAERS Safety Report 11753095 (Version 1)
Quarter: 2015Q4

REPORT INFORMATION
  Report Type: Spontaneous
  Country: US (occurrence: None)
  Receive Date: 20151117
  Receipt Date: 20151117
  Transmission Date: 20160304
  Serious: Yes (Hospitalization)
  Sender: FDA-Public Use
  Company Number: None

PATIENT
  Age: 29 Year
  Sex: Female

DRUGS (2)
  1. RIBAVIRIN (RIBAVIRIN) TABLET [Suspect]
     Active Substance: RIBAVIRIN
     Indication: HEPATITIS C
     Route: 048
     Dates: start: 20141115
  2. SOVALDI [Concomitant]
     Active Substance: SOFOSBUVIR

REACTIONS (2)
  - Exposure during pregnancy [None]
  - Pre-eclampsia [None]

NARRATIVE: CASE EVENT DATE: 20150724
